FAERS Safety Report 5916421-1 (Version None)
Quarter: 2008Q4

REPORT INFORMATION
  Report Type: 
  Country: None (occurrence: None)
  Receive Date: 20081013
  Receipt Date: 20080912
  Transmission Date: 20090506
  Serious: No
  Sender: FDA-Public Use
  Company Number: US-BAYER-200833619NA

PATIENT
  Age: 36 Year
  Sex: Female

DRUGS (1)
  1. MIRENA [Suspect]
     Indication: DRUG USE FOR UNKNOWN INDICATION
     Route: 015
     Dates: start: 20080815, end: 20080902

REACTIONS (2)
  - ABDOMINAL DISCOMFORT [None]
  - INTRA-UTERINE CONTRACEPTIVE DEVICE EXPELLED [None]
